FAERS Safety Report 16920570 (Version 3)
Quarter: 2019Q4

REPORT INFORMATION
  Report Type: Report from Study
  Country: GB (occurrence: GB)
  Receive Date: 20191015
  Receipt Date: 20191029
  Transmission Date: 20200122
  Serious: Yes (Hospitalization)
  Sender: FDA-Public Use
  Company Number: GB-MYLANLABS-2019M1096694

PATIENT
  Sex: Female

DRUGS (1)
  1. BRABIO 40 MG/ML SOLUTION FOR INJECTION, PRE-FILLED-SYRINGE [Suspect]
     Active Substance: GLATIRAMER ACETATE
     Indication: MULTIPLE SCLEROSIS
     Dosage: 40 MILLIGRAM, 3XW
     Route: 058
     Dates: start: 20191010

REACTIONS (8)
  - Muscle contractions involuntary [Unknown]
  - Pain [Unknown]
  - Crying [Unknown]
  - Malaise [Unknown]
  - Emotional distress [Unknown]
  - Abdominal pain upper [Unknown]
  - Hot flush [Unknown]
  - Vomiting [Unknown]

NARRATIVE: CASE EVENT DATE: 20191010
